FAERS Safety Report 25439779 (Version 1)
Quarter: 2025Q2

REPORT INFORMATION
  Report Type: Spontaneous
  Country: US (occurrence: None)
  Receive Date: 20250615
  Receipt Date: 20250615
  Transmission Date: 20250716
  Serious: No
  Sender: FDA-CTU
  Company Number: None

PATIENT
  Age: 16 Year
  Sex: Female
  Weight: 112.5 kg

DRUGS (5)
  1. ARIPIPRAZOLE [Suspect]
     Active Substance: ARIPIPRAZOLE
     Indication: Bipolar disorder
     Route: 048
     Dates: start: 20230826, end: 20230910
  2. NITROFURANTOIN [Concomitant]
     Active Substance: NITROFURANTOIN
  3. ARIPIPRAZOLE [Concomitant]
     Active Substance: ARIPIPRAZOLE
  4. DEPO-TESTOSTERONE [Concomitant]
     Active Substance: TESTOSTERONE CYPIONATE
  5. intramuscular needles/syringes for depo-testosterone [Concomitant]

REACTIONS (2)
  - Hallucination, auditory [None]
  - Suicidal ideation [None]

NARRATIVE: CASE EVENT DATE: 20230827
